FAERS Safety Report 9717007 (Version 1)
Quarter: 2013Q4

REPORT INFORMATION
  Report Type: Spontaneous
  Country: US (occurrence: US)
  Receive Date: 20131127
  Receipt Date: 20131127
  Transmission Date: 20140711
  Serious: No
  Sender: FDA-Public Use
  Company Number: US-GILEAD-2009-0020283

PATIENT
  Sex: Male
  Weight: 122.47 kg

DRUGS (1)
  1. LETAIRIS [Suspect]
     Indication: PULMONARY ARTERIAL HYPERTENSION
     Route: 048

REACTIONS (9)
  - Abdominal distension [Unknown]
  - Anxiety [Unknown]
  - Asthenia [Unknown]
  - Dyspnoea [Unknown]
  - Nasal congestion [Unknown]
  - Throat irritation [Unknown]
  - Palpitations [Unknown]
  - Oedema [Unknown]
  - Constipation [Unknown]
